FAERS Safety Report 17158042 (Version 2)
Quarter: 2021Q1

REPORT INFORMATION
  Report Type: Report from Study
  Country: US (occurrence: US)
  Receive Date: 20191216
  Receipt Date: 20210312
  Transmission Date: 20210419
  Serious: No
  Sender: FDA-Public Use
  Company Number: US-009507513-1911USA007485

PATIENT
  Age: 81 Year
  Sex: Female
  Weight: 100.1 kg

DRUGS (11)
  1. JANUVIA [Suspect]
     Active Substance: SITAGLIPTIN PHOSPHATE
     Dosage: 1 PILL ONCE DAILY
     Route: 048
     Dates: start: 20191121
  2. LANTUS [Concomitant]
     Active Substance: INSULIN GLARGINE
     Dosage: IN AM AND PM
  3. COUMADIN [Concomitant]
     Active Substance: WARFARIN SODIUM
  4. SPIRONOLACTONE. [Concomitant]
     Active Substance: SPIRONOLACTONE
  5. AMITRIPTYLINE HYDROCHLORIDE. [Concomitant]
     Active Substance: AMITRIPTYLINE HYDROCHLORIDE
  6. HYDROXYZINE [Concomitant]
     Active Substance: HYDROXYZINE HYDROCHLORIDE
  7. LASIX [Concomitant]
     Active Substance: FUROSEMIDE
  8. LOSARTAN. [Concomitant]
     Active Substance: LOSARTAN
  9. JANUVIA [Suspect]
     Active Substance: SITAGLIPTIN PHOSPHATE
     Indication: DIABETES MELLITUS
     Dosage: 1 PILL ONCE DAILY
     Route: 048
     Dates: start: 20170829, end: 20191029
  10. CLONIDINE. [Concomitant]
     Active Substance: CLONIDINE
  11. METOPROLOL. [Concomitant]
     Active Substance: METOPROLOL

REACTIONS (4)
  - Blood glucose increased [Not Recovered/Not Resolved]
  - Product dispensing error [Unknown]
  - Drug ineffective [Not Recovered/Not Resolved]
  - Product dose omission issue [Recovered/Resolved]

NARRATIVE: CASE EVENT DATE: 201910
